FAERS Safety Report 9269484 (Version 1)
Quarter: 2013Q2

REPORT INFORMATION
  Report Type: Spontaneous
  Country: US (occurrence: US)
  Receive Date: 20130503
  Receipt Date: 20130503
  Transmission Date: 20140414
  Serious: Yes (Disabling)
  Sender: FDA-Public Use
  Company Number: US-PFIZER INC-2013137502

PATIENT
  Age: 51 Year
  Sex: Male
  Weight: 88.44 kg

DRUGS (2)
  1. LYRICA [Suspect]
     Indication: POST HERPETIC NEURALGIA
     Dosage: UNK, 1X/DAY
     Route: 048
     Dates: start: 2010
  2. LYRICA [Suspect]
     Indication: PAIN

REACTIONS (5)
  - Hepatitis C [Unknown]
  - Alanine aminotransferase abnormal [Unknown]
  - Aspartate aminotransferase abnormal [Unknown]
  - Blood bilirubin increased [Unknown]
  - Blood disorder [Unknown]
